FAERS Safety Report 4947603-3 (Version None)
Quarter: 2006Q1

REPORT INFORMATION
  Report Type: 
  Country: None (occurrence: None)
  Receive Date: 20060314
  Receipt Date: 20060301
  Transmission Date: 20060701
  Serious: Yes (Hospitalization)
  Sender: FDA-Public Use
  Company Number: 2006030446

PATIENT
  Age: 56 Year
  Sex: Female

DRUGS (1)
  1. TAHOR (ATORVASTATIN) [Suspect]
     Indication: ILL-DEFINED DISORDER

REACTIONS (2)
  - EOSINOPHILIA [None]
  - RENAL SURGERY [None]
